FAERS Safety Report 8190180-7 (Version None)
Quarter: 2012Q1

REPORT INFORMATION
  Report Type: 
  Country: None (occurrence: None)
  Receive Date: 20120305
  Receipt Date: 20120220
  Transmission Date: 20120608
  Serious: Yes (Hospitalization)
  Sender: FDA-Public Use
  Company Number: JPI-P-019862

PATIENT
  Age: 41 Year
  Sex: Female

DRUGS (3)
  1. XYREM [Suspect]
     Indication: NARCOLEPSY
     Dosage: 4.5 MG  (2.25 GM,2 IN 1 D),ORAL, (TITRATING DOSE),ORAL, 9 GM (4.5 GM,2 IN 1 D),ORAL
     Route: 048
     Dates: start: 20090626
  2. XYREM [Suspect]
     Indication: NARCOLEPSY
     Dosage: 4.5 MG  (2.25 GM,2 IN 1 D),ORAL, (TITRATING DOSE),ORAL, 9 GM (4.5 GM,2 IN 1 D),ORAL
     Route: 048
     Dates: start: 20090327, end: 20090101
  3. XYREM [Suspect]
     Indication: NARCOLEPSY
     Dosage: 4.5 MG  (2.25 GM,2 IN 1 D),ORAL, (TITRATING DOSE),ORAL, 9 GM (4.5 GM,2 IN 1 D),ORAL
     Route: 048
     Dates: start: 20090101, end: 20090101

REACTIONS (10)
  - SOMNOLENCE [None]
  - MENORRHAGIA [None]
  - GLOSSODYNIA [None]
  - RETCHING [None]
  - THERAPEUTIC RESPONSE DECREASED [None]
  - NAUSEA [None]
  - SURGERY [None]
  - DYSPNOEA [None]
  - HEADACHE [None]
  - LIP DRY [None]
